FAERS Safety Report 11901130 (Version 1)
Quarter: 2016Q1

REPORT INFORMATION
  Report Type: Report from Study
  Country: US (occurrence: US)
  Receive Date: 20160108
  Receipt Date: 20160108
  Transmission Date: 20160526
  Serious: No
  Sender: FDA-Public Use
  Company Number: US-ABBVIE-15P-163-1475668-00

PATIENT
  Sex: Female

DRUGS (2)
  1. RIBAVIRIN. [Concomitant]
     Active Substance: RIBAVIRIN
     Indication: HEPATITIS C
     Route: 048
     Dates: start: 20150923
  2. VIEKIRA PAK [Suspect]
     Active Substance: DASABUVIR\OMBITASVIR\PARITAPREVIR\RITONAVIR
     Indication: HEPATITIS C
     Dosage: TWO PINK TABLETS WITH ONE BEIGE TABLET IN THE MORNING AND ONE BEIGE TABLET IN THE EVENING
     Route: 048
     Dates: start: 20150923

REACTIONS (5)
  - Abdominal discomfort [Unknown]
  - Insomnia [Unknown]
  - Decreased appetite [Unknown]
  - Nipple pain [Unknown]
  - Nipple swelling [Unknown]
